FAERS Safety Report 17553901 (Version 2)
Quarter: 2020Q1

REPORT INFORMATION
  Report Type: Spontaneous
  Country: US (occurrence: US)
  Receive Date: 20200317
  Receipt Date: 20200326
  Transmission Date: 20200409
  Serious: Yes (Other)
  Sender: FDA-Public Use
  Company Number: US-ABBVIE-20K-163-3321118-00

PATIENT
  Age: 30 Year

DRUGS (2)
  1. ORILISSA [Suspect]
     Active Substance: ELAGOLIX SODIUM
     Indication: ENDOMETRIOSIS
     Route: 048
     Dates: start: 201911, end: 201912
  2. BOTOX [Concomitant]
     Active Substance: ONABOTULINUMTOXINA
     Indication: PRODUCT USED FOR UNKNOWN INDICATION
     Dosage: BOTOX INJECTIONS

REACTIONS (17)
  - Pain [Unknown]
  - Pain [Not Recovered/Not Resolved]
  - Pelvic pain [Unknown]
  - Thermal burn [Unknown]
  - Dyspareunia [Unknown]
  - Loss of consciousness [Unknown]
  - Menopause [Unknown]
  - Vulvitis [Unknown]
  - Hypertonic bladder [Unknown]
  - Cystitis interstitial [Unknown]
  - Pelvic floor muscle weakness [Unknown]
  - Myofascial pain syndrome [Unknown]
  - Pudendal canal syndrome [Unknown]
  - Anxiety [Unknown]
  - Endometriosis [Not Recovered/Not Resolved]
  - Hypoaesthesia [Unknown]
  - Adverse drug reaction [Unknown]

NARRATIVE: CASE EVENT DATE: 2019
